FAERS Safety Report 6566353-3 (Version None)
Quarter: 2010Q1

REPORT INFORMATION
  Report Type: 
  Country: None (occurrence: None)
  Receive Date: 20100202
  Receipt Date: 20091216
  Transmission Date: 20100710
  Serious: Yes (Disabling)
  Sender: FDA-Public Use
  Company Number: PT-MILLENNIUM PHARMACEUTICALS, INC.-2009-05284

PATIENT

DRUGS (1)
  1. VELCADE [Suspect]
     Indication: MEDICATION ERROR
     Dosage: UNK
     Route: 065
     Dates: start: 20090717, end: 20090717

REACTIONS (3)
  - BLINDNESS UNILATERAL [None]
  - DRUG DISPENSING ERROR [None]
  - WRONG DRUG ADMINISTERED [None]
